FAERS Safety Report 8674484 (Version 3)
Quarter: 2012Q4

REPORT INFORMATION
  Report Type: 
  Country: US (occurrence: US)
  Receive Date: 20120720
  Receipt Date: 20121105
  Transmission Date: 20130627
  Serious: No
  Sender: FDA-Public Use
  Company Number: US-PFIZER INC-2012173554

PATIENT
  Age: 39 Year
  Sex: Male
  Weight: 81.63 kg

DRUGS (5)
  1. PRISTIQ [Suspect]
     Indication: ANXIETY
     Dosage: 50 mg, daily
     Dates: start: 201206
  2. ANDROGEL [Concomitant]
     Indication: TESTOSTERONE LOW
     Dosage: two pumps, daily
  3. CYMBALTA [Concomitant]
     Indication: ANXIETY
     Dosage: 60 mg, daily
     Route: 048
     Dates: start: 20120510, end: 20120712
  4. CYMBALTA [Concomitant]
     Indication: CHRONIC PAIN
  5. NEXIUM [Concomitant]
     Indication: ACID REFLUX (ESOPHAGEAL)
     Dosage: 20 mg, daily

REACTIONS (4)
  - Drug ineffective [Unknown]
  - Memory impairment [Not Recovered/Not Resolved]
  - Dizziness [Not Recovered/Not Resolved]
  - Hyperhidrosis [Recovered/Resolved]
